FAERS Safety Report 4757411-4 (Version None)
Quarter: 2005Q3

REPORT INFORMATION
  Report Type: 
  Country: None (occurrence: None)
  Receive Date: 20050829
  Receipt Date: 20050827
  Transmission Date: 20060218
  Serious: Yes (Hospitalization, Other)
  Sender: FDA-Public Use
  Company Number: 8010880

PATIENT
  Sex: Male

DRUGS (2)
  1. KEPPRA [Suspect]
     Dosage: 200 MG /D PO
     Route: 048
  2. KEPPRA [Suspect]
     Dosage: 200 MG 2/D PO
     Route: 048
     Dates: end: 20050612

REACTIONS (1)
  - STATUS EPILEPTICUS [None]
